FAERS Safety Report 8911426 (Version 1)
Quarter: 2012Q4

REPORT INFORMATION
  Report Type: 
  Country: US (occurrence: US)
  Receive Date: 20121116
  Receipt Date: 20121116
  Transmission Date: 20130627
  Serious: Yes (Hospitalization)
  Sender: FDA-Public Use
  Company Number: US-BAYER-2012-117573

PATIENT
  Age: 91 Year
  Sex: Female

DRUGS (2)
  1. STIVARGA [Suspect]
     Indication: COLON CANCER
     Dosage: 40 mg, 4 tablets qd, daily
     Route: 048
     Dates: start: 20121004, end: 20121005
  2. STIVARGA [Suspect]
     Indication: COLON CANCER
     Dosage: 1 tablet daily
     Dates: start: 20121024

REACTIONS (2)
  - Cardiac failure congestive [None]
  - Cardiac failure congestive [None]
